FAERS Safety Report 5502467-4 (Version None)
Quarter: 2007Q4

REPORT INFORMATION
  Report Type: 
  Country: None (occurrence: None)
  Receive Date: 20071030
  Receipt Date: 20071018
  Transmission Date: 20080405
  Serious: Yes (Hospitalization, Other)
  Sender: FDA-Public Use
  Company Number: US-PFIZER INC-2007087716

PATIENT
  Sex: Male
  Weight: 108 kg

DRUGS (4)
  1. CHANTIX [Suspect]
     Indication: SMOKING CESSATION THERAPY
     Dates: start: 20070325, end: 20070506
  2. KEPPRA [Suspect]
     Indication: CONVULSION
     Dates: start: 20070101
  3. BENICAR [Concomitant]
     Indication: HYPERTENSION
  4. VITAMIN CAP [Concomitant]

REACTIONS (9)
  - ANTICONVULSANT DRUG LEVEL ABNORMAL [None]
  - BRAIN NEOPLASM [None]
  - BRAIN OEDEMA [None]
  - DISORIENTATION [None]
  - GRAND MAL CONVULSION [None]
  - NIGHTMARE [None]
  - STRESS [None]
  - THYROID FUNCTION TEST ABNORMAL [None]
  - THYROID NEOPLASM [None]
